FAERS Safety Report 14648467 (Version 1)
Quarter: 2018Q1

REPORT INFORMATION
  Report Type: Spontaneous
  Country: US (occurrence: US)
  Receive Date: 20180316
  Receipt Date: 20180316
  Transmission Date: 20180509
  Serious: Yes (Hospitalization)
  Sender: FDA-Public Use
  Company Number: US-PFIZER INC-2018105151

PATIENT
  Age: 40 Year
  Sex: Female
  Weight: 56.7 kg

DRUGS (1)
  1. VENLAFAXINE HCL [Suspect]
     Active Substance: VENLAFAXINE HYDROCHLORIDE
     Indication: DEPRESSION
     Dosage: 150 MG, 1X/DAY (ONCE DAILY)
     Route: 048

REACTIONS (4)
  - Crying [Not Recovered/Not Resolved]
  - Drug ineffective [Unknown]
  - Mental disorder [Unknown]
  - Suicide attempt [Unknown]

NARRATIVE: CASE EVENT DATE: 2011
